FAERS Safety Report 12776512 (Version 5)
Quarter: 2016Q4

REPORT INFORMATION
  Report Type: Report from Study
  Country: US (occurrence: US)
  Receive Date: 20160923
  Receipt Date: 20161219
  Transmission Date: 20170207
  Serious: Yes (Hospitalization, Other)
  Sender: FDA-Public Use
  Company Number: US-GILEAD-2016-0233865

PATIENT
  Age: 53 Year
  Sex: Female
  Weight: 103.9 kg

DRUGS (15)
  1. AMBRISENTAN [Suspect]
     Active Substance: AMBRISENTAN
     Indication: PULMONARY ARTERIAL HYPERTENSION
     Dosage: 10 MG, QD
     Route: 065
     Dates: start: 20130315
  2. KCL [Concomitant]
     Active Substance: POTASSIUM CHLORIDE
  3. FAMOTIDINE. [Concomitant]
     Active Substance: FAMOTIDINE
  4. MORPHINE [Concomitant]
     Active Substance: MORPHINE
  5. AMBRISENTAN [Suspect]
     Active Substance: AMBRISENTAN
     Indication: DRUG ABUSE
  6. REBOXETINE [Concomitant]
     Active Substance: REBOXETINE
  7. SPIRONOLACTONE. [Concomitant]
     Active Substance: SPIRONOLACTONE
  8. XARELTO [Concomitant]
     Active Substance: RIVAROXABAN
  9. FLONASE                            /00908302/ [Concomitant]
     Active Substance: MOMETASONE FUROATE
  10. SILDENAFIL. [Concomitant]
     Active Substance: SILDENAFIL
  11. RIVAROXABAN [Concomitant]
     Active Substance: RIVAROXABAN
  12. BUMEX [Concomitant]
     Active Substance: BUMETANIDE
  13. INSULIN [Concomitant]
     Active Substance: INSULIN NOS
  14. DILTIAZEM. [Concomitant]
     Active Substance: DILTIAZEM
  15. METHIMAZOLE. [Concomitant]
     Active Substance: METHIMAZOLE

REACTIONS (5)
  - Atrial fibrillation [Recovered/Resolved]
  - Loss of consciousness [Recovered/Resolved]
  - Syncope [Recovered/Resolved]
  - Atrial flutter [Recovered/Resolved]
  - Hypotension [Recovered/Resolved]

NARRATIVE: CASE EVENT DATE: 20160914
